FAERS Safety Report 24201729 (Version 2)
Quarter: 2025Q2

REPORT INFORMATION
  Report Type: Spontaneous
  Country: US (occurrence: US)
  Receive Date: 20240812
  Receipt Date: 20250608
  Transmission Date: 20250716
  Serious: No
  Sender: COHERUS
  Company Number: US-Coherus Biosciences INC-2024-COH-US000640

PATIENT

DRUGS (5)
  1. UDENYCA [Suspect]
     Active Substance: PEGFILGRASTIM-CBQV
     Indication: Oropharyngeal cancer
     Dosage: 6 MG/0.6 ML, Q3WEEKS
     Route: 058
     Dates: start: 20240510, end: 20240510
  2. UDENYCA [Suspect]
     Active Substance: PEGFILGRASTIM-CBQV
     Dosage: 6 MG/0.6 ML, Q3WEEKS
     Route: 058
     Dates: start: 20240607, end: 20240607
  3. UDENYCA [Suspect]
     Active Substance: PEGFILGRASTIM-CBQV
     Dosage: 6 MG/0.6 ML, Q3WEEKS
     Route: 058
     Dates: start: 20240628, end: 20240802
  4. CARBOPLATIN [Concomitant]
     Active Substance: CARBOPLATIN
     Indication: Prophylaxis
  5. PEMBROLIZUMAB [Concomitant]
     Active Substance: PEMBROLIZUMAB
     Indication: Prophylaxis

REACTIONS (3)
  - Product dose omission issue [Not Recovered/Not Resolved]
  - Device malfunction [Not Recovered/Not Resolved]
  - No adverse event [Unknown]

NARRATIVE: CASE EVENT DATE: 20240629
